FAERS Safety Report 15710402 (Version 1)
Quarter: 2018Q4

REPORT INFORMATION
  Report Type: Spontaneous
  Country: US (occurrence: US)
  Receive Date: 20181211
  Receipt Date: 20181211
  Transmission Date: 20190205
  Serious: No
  Sender: FDA-Public Use
  Company Number: US-LPDUSPRD-20180098

PATIENT
  Sex: Male

DRUGS (1)
  1. VENOFER [Suspect]
     Active Substance: IRON SUCROSE
     Dosage: 200 MG/SALINE DRIP (3 DOSES)
     Route: 051
     Dates: start: 201801, end: 201801

REACTIONS (4)
  - Cardiac flutter [Unknown]
  - Muscle spasms [Unknown]
  - Chromaturia [Unknown]
  - Chest discomfort [Unknown]

NARRATIVE: CASE EVENT DATE: 201801
